FAERS Safety Report 11480828 (Version 2)
Quarter: 2016Q1

REPORT INFORMATION
  Report Type: Report from Study
  Country: CA (occurrence: CA)
  Receive Date: 20150909
  Receipt Date: 20160127
  Transmission Date: 20160525
  Serious: Yes (Hospitalization)
  Sender: FDA-Public Use
  Company Number: CA-CELGENE-CAN-2015087194

PATIENT
  Age: 66 Year
  Sex: Female
  Weight: 50.7 kg

DRUGS (38)
  1. POLYETHYLENE GLYCOL [Concomitant]
     Active Substance: POLYETHYLENE GLYCOLS
     Indication: CONSTIPATION
     Route: 048
     Dates: start: 20150817
  2. NORMAL SALINE [Concomitant]
     Active Substance: SODIUM CHLORIDE
     Indication: DEHYDRATION
     Route: 040
     Dates: start: 20150819, end: 20150819
  3. KCL [Concomitant]
     Active Substance: POTASSIUM CHLORIDE
     Dosage: 840 MILLIGRAM
     Route: 041
     Dates: start: 20150901, end: 20150903
  4. PHOSPHATE NOVARTIS [Concomitant]
     Indication: HYPOPHOSPHATAEMIA
     Route: 048
     Dates: start: 20150828, end: 20150909
  5. PIPERACILLIN AND TAZOBACTAM [Concomitant]
     Active Substance: PIPERACILLIN SODIUM\TAZOBACTAM SODIUM
     Indication: BACTERAEMIA
     Route: 041
     Dates: start: 20150827, end: 20150903
  6. MICAFUNGIN [Concomitant]
     Active Substance: MICAFUNGIN
     Indication: ORAL CANDIDIASIS
     Route: 041
     Dates: start: 20150829, end: 20150831
  7. CALCIUM CARBONATE. [Concomitant]
     Active Substance: CALCIUM CARBONATE
     Indication: HYPOCALCAEMIA
     Route: 048
     Dates: start: 20150827, end: 20150827
  8. AMOXICILLIN. [Concomitant]
     Active Substance: AMOXICILLIN
     Indication: BACTERAEMIA
     Route: 048
     Dates: start: 20150903, end: 20150910
  9. CALCIUM CARBONATE. [Concomitant]
     Active Substance: CALCIUM CARBONATE
     Dosage: 12 MILLIGRAM
     Route: 048
     Dates: start: 20150831, end: 20150908
  10. TYLENOL [Concomitant]
     Active Substance: ACETAMINOPHEN
     Indication: TRANSFUSION REACTION
     Dosage: 13.5 GRAM
     Route: 048
     Dates: start: 20150828
  11. BENADRYL [Concomitant]
     Active Substance: DIPHENHYDRAMINE HYDROCHLORIDE
     Indication: TRANSFUSION REACTION
     Dosage: 400 MILLIGRAM
     Route: 048
     Dates: start: 20150828
  12. BENADRYL [Concomitant]
     Active Substance: DIPHENHYDRAMINE HYDROCHLORIDE
     Indication: PROPHYLAXIS
     Dosage: 40 MILLIGRAM
     Route: 041
     Dates: start: 20150827, end: 20150827
  13. BENADRYL [Concomitant]
     Active Substance: DIPHENHYDRAMINE HYDROCHLORIDE
     Indication: CHILLS
  14. MAALOX ANTACID [Concomitant]
     Active Substance: ALUMINUM HYDROXIDE\DIMETHICONE\MAGNESIUM HYDROXIDE
     Indication: GASTROOESOPHAGEAL REFLUX DISEASE
     Route: 048
     Dates: start: 20150829, end: 20150829
  15. LASIX [Concomitant]
     Active Substance: FUROSEMIDE
     Indication: GENERALISED OEDEMA
     Route: 048
     Dates: start: 20150901, end: 20150901
  16. NORMAL SALINE [Concomitant]
     Active Substance: SODIUM CHLORIDE
     Indication: SUPPLEMENTATION THERAPY
     Route: 040
     Dates: start: 20150824, end: 20150826
  17. NORMAL SALINE [Concomitant]
     Active Substance: SODIUM CHLORIDE
     Route: 041
     Dates: start: 20150827, end: 20150827
  18. NYSTATIN. [Concomitant]
     Active Substance: NYSTATIN
     Indication: ORAL CANDIDIASIS
     Route: 048
     Dates: start: 20120825, end: 20150826
  19. GRAVOL [Concomitant]
     Active Substance: DIMENHYDRINATE
     Indication: NAUSEA
     Route: 048
     Dates: start: 20150826, end: 20150831
  20. ACYCLOVIR. [Concomitant]
     Active Substance: ACYCLOVIR
     Indication: ULCER
     Dosage: 2400 MILLIGRAM
     Route: 048
     Dates: start: 20150827, end: 20150902
  21. MAGNESIUM OXIDE. [Concomitant]
     Active Substance: MAGNESIUM OXIDE
     Indication: HYPOMAGNESAEMIA
     Route: 048
     Dates: start: 20150829, end: 20150911
  22. LASIX [Concomitant]
     Active Substance: FUROSEMIDE
     Indication: PROPHYLAXIS
     Route: 048
     Dates: start: 20150902, end: 20150918
  23. NORMAL SALINE [Concomitant]
     Active Substance: SODIUM CHLORIDE
     Indication: HYPOTENSION
     Route: 041
     Dates: start: 20150826, end: 20150827
  24. POTASSIUM CHLORIDE. [Concomitant]
     Active Substance: POTASSIUM CHLORIDE
     Indication: HYPOKALAEMIA
     Route: 048
     Dates: start: 20150824, end: 20150825
  25. MAXERAN [Concomitant]
     Active Substance: METOCLOPRAMIDE HYDROCHLORIDE
     Indication: NAUSEA
     Route: 048
     Dates: start: 20150825
  26. KCL [Concomitant]
     Active Substance: POTASSIUM CHLORIDE
     Indication: SUPPLEMENTATION THERAPY
     Route: 041
     Dates: start: 20150826, end: 20150828
  27. TYLENOL [Concomitant]
     Active Substance: ACETAMINOPHEN
     Indication: PROPHYLAXIS
  28. MICAFUNGIN [Concomitant]
     Active Substance: MICAFUNGIN
     Route: 041
     Dates: start: 20150901, end: 20150904
  29. MAGNESIUM SULFATE. [Concomitant]
     Active Substance: MAGNESIUM SULFATE
     Indication: HYPOMAGNESAEMIA
     Route: 041
     Dates: start: 20150830, end: 20150830
  30. SODIUM BICARBONATE. [Concomitant]
     Active Substance: SODIUM BICARBONATE
     Indication: BLOOD BICARBONATE DECREASED
     Dosage: 2 AMPS
     Route: 041
     Dates: start: 20150827, end: 20150828
  31. NORMAL SALINE [Concomitant]
     Active Substance: SODIUM CHLORIDE
     Route: 041
     Dates: start: 20150828, end: 20150828
  32. HYDROMORPHONE [Concomitant]
     Active Substance: HYDROMORPHONE
     Indication: PAIN
     Route: 048
     Dates: start: 20150722
  33. KCL [Concomitant]
     Active Substance: POTASSIUM CHLORIDE
     Indication: HYPOKALAEMIA
     Route: 041
     Dates: start: 20150824, end: 20150826
  34. PANTOPRAZOLE [Concomitant]
     Active Substance: PANTOPRAZOLE SODIUM
     Indication: GASTROOESOPHAGEAL REFLUX DISEASE
     Dosage: 1000000 IU (INTERNATIONAL UNIT)
     Route: 048
     Dates: start: 20150829, end: 20150901
  35. LASIX [Concomitant]
     Active Substance: FUROSEMIDE
     Route: 048
     Dates: start: 20150909
  36. REVLIMID [Suspect]
     Active Substance: LENALIDOMIDE
     Indication: PLASMA CELL MYELOMA
     Dosage: 15 MILLIGRAM
     Route: 048
     Dates: start: 20150406, end: 20150819
  37. SLOW K [Concomitant]
     Active Substance: POTASSIUM CHLORIDE
     Indication: HYPOKALAEMIA
     Dosage: 1000 MILLIGRAM
     Route: 048
     Dates: start: 20150901, end: 20150908
  38. HYDROMORPH CONTIN [Concomitant]
     Active Substance: HYDROMORPHONE
     Indication: PAIN
     Dosage: 1500 MILLIGRAM
     Route: 048
     Dates: start: 20150826

REACTIONS (3)
  - Cholestasis [Recovered/Resolved]
  - Renal failure [Recovered/Resolved]
  - Pancytopenia [Recovered/Resolved]

NARRATIVE: CASE EVENT DATE: 20150824
